FAERS Safety Report 19872245 (Version 1)
Quarter: 2021Q3

REPORT INFORMATION
  Report Type: Spontaneous
  Country: US (occurrence: US)
  Receive Date: 20210922
  Receipt Date: 20210922
  Transmission Date: 20211014
  Serious: Yes (Other)
  Sender: FDA-Public Use
  Company Number: US-PERRIGO-21US026736

PATIENT
  Age: 54 Year
  Sex: Male

DRUGS (2)
  1. RANITIDINE HYDROCHLORIDE (156) [Suspect]
     Active Substance: RANITIDINE HYDROCHLORIDE
     Indication: DYSPEPSIA
  2. RANITIDINE HYDROCHLORIDE (156) [Suspect]
     Active Substance: RANITIDINE HYDROCHLORIDE
     Indication: GASTROOESOPHAGEAL REFLUX DISEASE
     Dosage: DOSE FREQUENCY: OTHER ? ALTERNATED ZANTAC + RANITIDINE USE WHEREIN USE WAS 2 TO 3 TIMES DAILY
     Route: 048
     Dates: start: 200801, end: 201709

REACTIONS (3)
  - Pancreatic carcinoma [Unknown]
  - Malignant splenic neoplasm [Unknown]
  - Non-Hodgkin^s lymphoma [Unknown]

NARRATIVE: CASE EVENT DATE: 20180613
